FAERS Safety Report 8426548-0 (Version None)
Quarter: 2012Q2

REPORT INFORMATION
  Report Type: 
  Country: None (occurrence: None)
  Receive Date: 20120611
  Receipt Date: 20120604
  Transmission Date: 20120825
  Serious: Yes (Hospitalization, Other)
  Sender: FDA-Public Use
  Company Number: CA-ABBOTT-11P-028-0880704-00

PATIENT
  Sex: Female
  Weight: 74.91 kg

DRUGS (14)
  1. HUMIRA [Suspect]
     Indication: ANKYLOSING SPONDYLITIS
     Route: 058
     Dates: start: 20110809, end: 20111117
  2. CYCLOBENZAPRINE [Concomitant]
     Indication: PRODUCT USED FOR UNKNOWN INDICATION
     Route: 048
  3. AVAPRO [Concomitant]
     Indication: HYPERTENSION
     Route: 048
  4. SAS-EC [Concomitant]
     Indication: HYPERTENSION
     Route: 048
  5. HUMIRA [Suspect]
     Dates: start: 20120529
  6. GLICLAZIDE [Concomitant]
     Indication: DIABETES MELLITUS
     Route: 048
  7. VITAMIN B-12 [Concomitant]
     Indication: SUPPLEMENTATION THERAPY
     Route: 030
  8. DOCUSATE [Concomitant]
     Indication: PRODUCT USED FOR UNKNOWN INDICATION
     Route: 048
  9. AMLODIPINE [Concomitant]
     Indication: ANGINA PECTORIS
     Route: 048
  10. APO-ISOSORBIDE MONONITRATE [Concomitant]
     Indication: ANGINA PECTORIS
     Route: 048
  11. IRON [Concomitant]
     Indication: SUPPLEMENTATION THERAPY
     Route: 048
  12. SYNTHROID [Concomitant]
     Indication: THYROID DISORDER
     Route: 048
  13. PRAVASTATIN [Concomitant]
     Indication: BLOOD CHOLESTEROL INCREASED
     Route: 048
  14. METOPROLOL TARTRATE [Concomitant]
     Indication: HYPERTENSION
     Route: 048

REACTIONS (3)
  - POST PROCEDURAL HAEMORRHAGE [None]
  - RENAL FAILURE [None]
  - SEPSIS [None]
